FAERS Safety Report 4456633-X (Version None)
Quarter: 2004Q3

REPORT INFORMATION
  Report Type: 
  Country: None (occurrence: None)
  Receive Date: 20040921
  Receipt Date: 20040908
  Transmission Date: 20050211
  Serious: Yes (Other)
  Sender: FDA-Public Use
  Company Number: 2004063495

PATIENT
  Age: 71 Year
  Sex: Male

DRUGS (10)
  1. NEURONTIN [Suspect]
     Indication: GROIN PAIN
     Dosage: 600 MG (600 MG, 1 IN 1 D), ORAL
     Route: 048
     Dates: start: 20040730, end: 20040101
  2. ATORVASTATIN (ATORVASTATIN) [Concomitant]
  3. NIFEDIPINE [Concomitant]
  4. METFORMIN HYDROCHLORIDE/ROSIGLITAZONE (METFORMIN HYDROCHLORIDE, ROSIGL [Concomitant]
  5. GLYBURIDE [Concomitant]
  6. METOPROLOL TARTRATE [Concomitant]
  7. RAMIRPIL (RAMIPRIL) [Concomitant]
  8. FOLIC ACID [Concomitant]
  9. MAGNSEIUM (MAGNESIUM) [Concomitant]
  10. MULTIVITAMINS (ASCOBIC ACID, EGOCARCIFEROL, FOLIC ACID, NICOTINAMIDE, [Concomitant]

REACTIONS (4)
  - ASTHENIA [None]
  - COORDINATION ABNORMAL [None]
  - FALL [None]
  - MOVEMENT DISORDER [None]
